FAERS Safety Report 9112708 (Version 1)
Quarter: 2013Q1

REPORT INFORMATION
  Report Type: Spontaneous
  Country: US (occurrence: US)
  Receive Date: 20130211
  Receipt Date: 20130211
  Transmission Date: 20140127
  Serious: No
  Sender: FDA-Public Use
  Company Number: US-TEVA-385394USA

PATIENT
  Age: 62 Year
  Sex: Female
  Weight: 72.64 kg

DRUGS (2)
  1. PROAIR HFA [Suspect]
     Dosage: VARIES
     Route: 055
  2. HYPERTENSION MEDICATION [Concomitant]

REACTIONS (4)
  - Tremor [Recovering/Resolving]
  - Heart rate increased [Recovering/Resolving]
  - Dizziness [Recovering/Resolving]
  - Nervousness [Recovering/Resolving]
